FAERS Safety Report 7529628-7 (Version None)
Quarter: 2011Q2

REPORT INFORMATION
  Report Type: 
  Country: None (occurrence: None)
  Receive Date: 20110607
  Receipt Date: 20110530
  Transmission Date: 20111010
  Serious: Yes (Hospitalization, Other)
  Sender: FDA-Public Use
  Company Number: A0861369A

PATIENT
  Sex: Female

DRUGS (2)
  1. XELODA [Concomitant]
     Dosage: 1500MG TWICE PER DAY
     Route: 065
     Dates: start: 20100401
  2. TYKERB [Suspect]
     Dosage: 1250MG PER DAY
     Route: 048
     Dates: start: 20100401

REACTIONS (4)
  - DEPRESSED LEVEL OF CONSCIOUSNESS [None]
  - NAUSEA [None]
  - DIARRHOEA [None]
  - CONVULSION [None]
